FAERS Safety Report 6591492-0 (Version None)
Quarter: 2010Q1

REPORT INFORMATION
  Report Type: 
  Country: None (occurrence: None)
  Receive Date: 20100219
  Receipt Date: 20100211
  Transmission Date: 20100710
  Serious: Yes (Death, Hospitalization)
  Sender: FDA-Public Use
  Company Number: US-ABBOTT-09P-163-0605418-00

PATIENT
  Sex: Male

DRUGS (3)
  1. HUMIRA [Suspect]
     Indication: CROHN'S DISEASE
     Dosage: 80MG LOADING DOSE, DAY 2
     Route: 058
     Dates: start: 20090913
  2. HUMIRA [Suspect]
     Route: 058
     Dates: end: 20091008
  3. PREDNISONE TAB [Suspect]
     Indication: CROHN'S DISEASE
     Dates: start: 20090801, end: 20091008

REACTIONS (7)
  - ACUTE RESPIRATORY DISTRESS SYNDROME [None]
  - DYSPNOEA [None]
  - PNEUMOCOCCAL SEPSIS [None]
  - PNEUMONIA [None]
  - RESPIRATORY FAILURE [None]
  - SEPSIS [None]
  - SEPTIC SHOCK [None]
